FAERS Safety Report 9368967 (Version 1)
Quarter: 2013Q2

REPORT INFORMATION
  Report Type: Spontaneous
  Country: CO (occurrence: None)
  Receive Date: 20130621
  Receipt Date: 20130621
  Transmission Date: 20140414
  Serious: Yes (Hospitalization)
  Sender: FDA-Public Use
  Company Number: DSU-2013-03629

PATIENT
  Age: 73 Year
  Sex: Male

DRUGS (3)
  1. OLMETEC HCT (HYDROCHLOROTHIAZIDE, OLMESARTAN MEDOXOMIL) (TABLET) (HYDROCHLOROTHIAZIDE, OLMESARTAN MEDOXOMIL) [Suspect]
     Indication: HYPERTENSION
     Route: 048
  2. GLUCOVANCE [Concomitant]
  3. CARDIOASPIRINA [Concomitant]

REACTIONS (4)
  - Femur fracture [None]
  - Abasia [None]
  - Movement disorder [None]
  - Activities of daily living impaired [None]
